FAERS Safety Report 12108737 (Version 2)
Quarter: 2016Q1

REPORT INFORMATION
  Report Type: Spontaneous
  Country: FR (occurrence: FR)
  Receive Date: 20160224
  Receipt Date: 20160229
  Transmission Date: 20160526
  Serious: Yes (Other)
  Sender: FDA-Public Use
  Company Number: FR-ASTRAZENECA-2015SF08397

PATIENT
  Age: 674 Month
  Sex: Female
  Weight: 92 kg

DRUGS (6)
  1. LERCAN [Concomitant]
     Active Substance: LERCANIDIPINE
  2. SKENAN [Concomitant]
     Active Substance: MORPHINE SULFATE
     Indication: PAIN
  3. DENOSUMAB [Concomitant]
     Active Substance: DENOSUMAB
     Dates: start: 201407
  4. IRESSA [Suspect]
     Active Substance: GEFITINIB
     Indication: NON-SMALL CELL LUNG CANCER
     Route: 048
     Dates: start: 201401
  5. TAGRISSO [Suspect]
     Active Substance: OSIMERTINIB
     Indication: NON-SMALL CELL LUNG CANCER METASTATIC
     Route: 048
     Dates: start: 20151119, end: 20151217
  6. ACUPAN [Concomitant]
     Active Substance: NEFOPAM HYDROCHLORIDE
     Indication: PAIN

REACTIONS (3)
  - Malignant neoplasm progression [Unknown]
  - Epistaxis [Unknown]
  - Acute haemorrhagic conjunctivitis [Unknown]

NARRATIVE: CASE EVENT DATE: 201410
